FAERS Safety Report 14618982 (Version 1)
Quarter: 2018Q1

REPORT INFORMATION
  Report Type: Spontaneous
  Country: GB (occurrence: GB)
  Receive Date: 20180309
  Receipt Date: 20180309
  Transmission Date: 20180509
  Serious: Yes (Death, Other)
  Sender: FDA-Public Use
  Company Number: PHHY2018GB036585

PATIENT
  Age: 46 Year
  Sex: Male

DRUGS (10)
  1. AZATHIOPRINE. [Suspect]
     Active Substance: AZATHIOPRINE
     Indication: LIVER TRANSPLANT
     Route: 065
  2. PREDNISOLONE. [Suspect]
     Active Substance: PREDNISOLONE
     Indication: IMMUNOSUPPRESSANT DRUG THERAPY
  3. TACROLIMUS. [Suspect]
     Active Substance: TACROLIMUS
     Indication: LIVER TRANSPLANT
     Route: 065
  4. TACROLIMUS. [Suspect]
     Active Substance: TACROLIMUS
     Indication: IMMUNOSUPPRESSANT DRUG THERAPY
  5. PREDNISOLONE. [Suspect]
     Active Substance: PREDNISOLONE
     Indication: LIVER TRANSPLANT
     Route: 065
  6. PENICILLIN V [Suspect]
     Active Substance: PENICILLIN V
     Indication: INFECTION PROPHYLAXIS
     Route: 065
  7. VALGANCICLOVIR. [Suspect]
     Active Substance: VALGANCICLOVIR
     Indication: INFECTION PROPHYLAXIS
     Route: 065
  8. MYCOPHENOLATE MOFETIL. [Suspect]
     Active Substance: MYCOPHENOLATE MOFETIL
     Indication: IMMUNOSUPPRESSANT DRUG THERAPY
  9. MYCOPHENOLATE MOFETIL. [Suspect]
     Active Substance: MYCOPHENOLATE MOFETIL
     Indication: LIVER TRANSPLANT
     Route: 065
  10. AZATHIOPRINE. [Suspect]
     Active Substance: AZATHIOPRINE
     Indication: IMMUNOSUPPRESSANT DRUG THERAPY

REACTIONS (12)
  - Portal fibrosis [Unknown]
  - Inflammation [Unknown]
  - Lower respiratory tract infection [Unknown]
  - Pneumocystis jirovecii pneumonia [Unknown]
  - Viral infection [Unknown]
  - Tonsil cancer [Fatal]
  - Cholestasis [Unknown]
  - Clostridium difficile colitis [Unknown]
  - Parvovirus B19 infection [Unknown]
  - Acute myeloid leukaemia [Fatal]
  - Nodular regenerative hyperplasia [Unknown]
  - Toxoplasmosis [Unknown]
